FAERS Safety Report 21225306 (Version 1)
Quarter: 2022Q3

REPORT INFORMATION
  Report Type: Spontaneous
  Country: BR (occurrence: BR)
  Receive Date: 20220817
  Receipt Date: 20220817
  Transmission Date: 20221026
  Serious: Yes (Other)
  Sender: FDA-Public Use
  Company Number: BR-CELLTRION INC.-2022BR013095

PATIENT

DRUGS (4)
  1. INFLIXIMAB [Suspect]
     Active Substance: INFLIXIMAB
     Indication: Crohn^s disease
     Dosage: 5 AMPOULES EVERY 8 WEEKS BEING THE FIRST TIME WITH REMSIMA, VIA ENDOVENOUS ROUTE
     Route: 042
  2. TRIMEBUTIN [Concomitant]
     Indication: Flatulence
     Dosage: 1 PILL PER DAY
     Route: 048
     Dates: start: 2015
  3. TRIMEBUTIN [Concomitant]
     Indication: Diarrhoea
  4. PROLIVE [Concomitant]
     Dosage: 1 PILL PER DAY
     Route: 048
     Dates: start: 2015

REACTIONS (4)
  - Fistula inflammation [Not Recovered/Not Resolved]
  - Gastrointestinal stoma complication [Not Recovered/Not Resolved]
  - Condition aggravated [Not Recovered/Not Resolved]
  - Product dose omission issue [Unknown]

NARRATIVE: CASE EVENT DATE: 20220401
